FAERS Safety Report 24821295 (Version 2)
Quarter: 2025Q1

REPORT INFORMATION
  Report Type: Spontaneous
  Country: US (occurrence: US)
  Receive Date: 20250108
  Receipt Date: 20250307
  Transmission Date: 20250408
  Serious: No
  Sender: SANOFI AVENTIS
  Company Number: US-SA-2024SA339314

PATIENT
  Age: 74 Year
  Sex: Female

DRUGS (1)
  1. DUPIXENT [Suspect]
     Active Substance: DUPILUMAB
     Indication: Dermatitis atopic
     Dosage: 300 MG, QOW
     Route: 065
     Dates: start: 202410

REACTIONS (4)
  - Dry skin [Unknown]
  - Herpes zoster [Unknown]
  - Pruritus [Unknown]
  - Palpitations [Unknown]

NARRATIVE: CASE EVENT DATE: 20240101
